FAERS Safety Report 7627841-1 (Version None)
Quarter: 2011Q3

REPORT INFORMATION
  Report Type: 
  Country: None (occurrence: None)
  Receive Date: 20110721
  Receipt Date: 20101209
  Transmission Date: 20111222
  Serious: Yes (Other)
  Sender: FDA-Public Use
  Company Number: US-BAYER-201018717NA

PATIENT
  Age: 56 Year
  Sex: Female
  Weight: 56 kg

DRUGS (42)
  1. MULTIHANCE [Suspect]
     Indication: ANGIOGRAM
  2. PREDNISONE [Concomitant]
  3. IMMUNOSUPPRESSIVE AGENTS [Concomitant]
  4. ACETAMINOPHEN W/ CODEINE [Concomitant]
     Indication: PAIN
     Dosage: ONE TAB Q4-6HRS PRN
  5. WARFARIN SODIUM [Concomitant]
     Dosage: 1 MG TAB (FOUR TABS DAILY)
     Route: 048
  6. MAGNEVIST [Suspect]
     Indication: ANGIOGRAM
     Route: 042
     Dates: start: 20050628, end: 20050628
  7. PROHANCE [Suspect]
     Indication: IMAGING PROCEDURE
  8. CONTRAST MEDIA [Concomitant]
     Dates: start: 20041010, end: 20041010
  9. CONTRAST MEDIA [Concomitant]
     Dates: start: 20060615, end: 20060615
  10. AZITHROMYCIN [Concomitant]
     Dosage: 250 MG TAB
  11. CONTRAST MEDIA [Suspect]
     Indication: ANGIOGRAM
     Dates: start: 20051209, end: 20051209
  12. CONTRAST MEDIA [Concomitant]
     Dates: start: 20040822, end: 20040822
  13. CONTRAST MEDIA [Concomitant]
     Dates: start: 20050518, end: 20050518
  14. GABAPENTIN [Concomitant]
     Dosage: 100 MG CAP AT HS
  15. TRIAMCINOLONE [Concomitant]
     Dosage: APPLY BID
  16. COREG [Concomitant]
     Dosage: 25 MG TAB DAILY
  17. LEVAQUIN [Concomitant]
     Dosage: 250 MG TAB DAILY
     Route: 048
  18. CONTRAST MEDIA [Concomitant]
     Dates: start: 20040811, end: 20040811
  19. CONTRAST MEDIA [Concomitant]
     Dates: start: 20050507, end: 20050507
  20. OMNISCAN [Suspect]
     Indication: ANGIOGRAM
  21. SENSIPAR [Concomitant]
  22. EPOGEN [Concomitant]
     Dosage: 10,000 U/ML TIW WITH DIALYSIS
  23. CONTRAST MEDIA [Concomitant]
     Dates: start: 20040806, end: 20040806
  24. PREDNISONE [Concomitant]
     Dosage: 5 MG TAB (2 TABS DAILY X 5 DAYS, THEN 1 TAB DAILY)
  25. HYDROCODONE BITARTRATE AND ACETAMINOPHEN [Concomitant]
     Dosage: 5MG/500 MG TAB (1-2 TABS Q6HR PRN)
  26. AMOXICILLIN [Concomitant]
     Indication: INFECTION
     Dosage: 500 MG CAP (ONE CAP Q6H)
  27. MAGNEVIST [Suspect]
  28. COUMADIN [Concomitant]
     Route: 048
     Dates: start: 20050701
  29. CONTRAST MEDIA [Concomitant]
     Dates: start: 20050218, end: 20050218
  30. PROCARDIA XL [Concomitant]
     Route: 048
     Dates: start: 20050630
  31. QUININE SULFATE [Concomitant]
     Indication: MUSCLE SPASMS
     Dosage: 260 MG TAB DAILY PRN
  32. OPTIMARK [Suspect]
     Indication: IMAGING PROCEDURE
  33. CONTRAST MEDIA [Suspect]
     Dates: start: 20060511, end: 20060511
  34. CONTRAST MEDIA [Suspect]
     Dates: start: 20060919, end: 20060919
  35. BLOOD PRESSURE MEDICATION (NOS) [Concomitant]
  36. RENAGEL [Concomitant]
     Dosage: 800 MG TAB (2 TABS TID WITH MEALS)
     Route: 048
  37. MAGNEVIST [Suspect]
     Indication: NUCLEAR MAGNETIC RESONANCE IMAGING
     Route: 042
     Dates: start: 20041014, end: 20041014
  38. RENAGEL [Concomitant]
     Route: 048
     Dates: start: 20050701
  39. IRON [IRON] [Concomitant]
  40. AMOXICILLIN [Concomitant]
     Dosage: 500 MG CAP Q6HR
  41. METRONIDAZOLE [Concomitant]
     Dosage: 500 MG TAB TID
  42. CIPROFLOXACIN [Concomitant]
     Dosage: 500 MG TAB DAILY

REACTIONS (19)
  - UPPER EXTREMITY MASS [None]
  - JOINT RANGE OF MOTION DECREASED [None]
  - DEFORMITY [None]
  - OEDEMA PERIPHERAL [None]
  - SKIN DISCOLOURATION [None]
  - JOINT STIFFNESS [None]
  - SCAR [None]
  - BURNING SENSATION [None]
  - NEPHROGENIC SYSTEMIC FIBROSIS [None]
  - ERYTHEMA [None]
  - GENERAL PHYSICAL HEALTH DETERIORATION [None]
  - ARTHRALGIA [None]
  - PEAU D'ORANGE [None]
  - PAIN OF SKIN [None]
  - EXTREMITY CONTRACTURE [None]
  - EXFOLIATIVE RASH [None]
  - SKIN INDURATION [None]
  - LOWER EXTREMITY MASS [None]
  - MUSCLE CONTRACTURE [None]
